FAERS Safety Report 4267983-4 (Version None)
Quarter: 2004Q1

REPORT INFORMATION
  Report Type: 
  Country: None (occurrence: None)
  Receive Date: 20040107
  Receipt Date: 20030512
  Transmission Date: 20041129
  Serious: Yes (Hospitalization)
  Sender: FDA-Public Use
  Company Number: 2003UW01310

PATIENT
  Age: 15 Year
  Sex: Female

DRUGS (7)
  1. DIPRIVAN [Suspect]
     Indication: PNEUMONIA
     Dates: start: 20030106, end: 20030127
  2. DIPRIVAN [Suspect]
     Indication: SEDATION
     Dates: start: 20030106, end: 20030127
  3. TRAZODONE HCL [Suspect]
     Indication: SOMNOLENCE
     Dosage: 50 MG ONCE
     Dates: start: 20030127
  4. HALOPERIDOL [Concomitant]
  5. DIAZEPAM [Concomitant]
  6. MORPHINE [Concomitant]
  7. TRAZODONE HCL [Suspect]
     Indication: SOMNOLENCE
     Dosage: 50 MG ONCE
     Dates: start: 20030127

REACTIONS (1)
  - DRUG WITHDRAWAL CONVULSIONS [None]
